FAERS Safety Report 7814847-2 (Version None)
Quarter: 2011Q4

REPORT INFORMATION
  Report Type: 
  Country: None (occurrence: None)
  Receive Date: 20111012
  Receipt Date: 20111003
  Transmission Date: 20120403
  Serious: Yes (Hospitalization, Other)
  Sender: FDA-Public Use
  Company Number: 1000024428

PATIENT
  Age: 77 Year
  Sex: Male

DRUGS (7)
  1. NARCOTIC PAIN MEDICATIONS (UNSPECIFIED) (NARCOTIC PAIN MEDICATIONS (UN [Suspect]
     Indication: PRODUCT USED FOR UNKNOWN INDICATION
  2. CELEXA [Suspect]
     Indication: DEPRESSION
     Dosage: ORAL
     Route: 048
     Dates: start: 20101101, end: 20110401
  3. VELCADE [Concomitant]
  4. REVLIMID [Suspect]
     Indication: MULTIPLE MYELOMA
     Dosage: 15 MG (15 MG, 1 IN 1 D), ORAL: 25-5 MG (1 IN 1 D), ORAL : 15 MG (15 MG,1 IN 1 D), ORAL
     Route: 048
     Dates: start: 20110301, end: 20110406
  5. REVLIMID [Suspect]
     Indication: MULTIPLE MYELOMA
     Dosage: 15 MG (15 MG, 1 IN 1 D), ORAL: 25-5 MG (1 IN 1 D), ORAL : 15 MG (15 MG,1 IN 1 D), ORAL
     Route: 048
     Dates: start: 20100621
  6. REVLIMID [Suspect]
     Indication: MULTIPLE MYELOMA
     Dosage: 15 MG (15 MG, 1 IN 1 D), ORAL: 25-5 MG (1 IN 1 D), ORAL : 15 MG (15 MG,1 IN 1 D), ORAL
     Route: 048
     Dates: start: 20100801, end: 20110101
  7. DECADRON [Concomitant]

REACTIONS (3)
  - NIGHTMARE [None]
  - MENTAL STATUS CHANGES [None]
  - DECREASED APPETITE [None]
